FAERS Safety Report 14250354 (Version 1)
Quarter: 2017Q4

REPORT INFORMATION
  Report Type: Spontaneous
  Country: US (occurrence: US)
  Receive Date: 20171205
  Receipt Date: 20171205
  Transmission Date: 20180321
  Serious: Yes (Other)
  Sender: FDA-Public Use
  Company Number: US-ACCORD-061653

PATIENT
  Age: 51 Year
  Sex: Male

DRUGS (1)
  1. METHOTREXATE. [Suspect]
     Active Substance: METHOTREXATE
     Indication: PRURITUS
     Dosage: LOW-DOSE,??DOSE: 7.5 MG/WEEK AND HAD COMPLETED 2 WEEKS OF THERAPY

REACTIONS (4)
  - Skin necrosis [Recovered/Resolved]
  - Off label use [Unknown]
  - Toxicity to various agents [Recovered/Resolved]
  - Pancytopenia [Recovered/Resolved]
